FAERS Safety Report 5656090-1 (Version None)
Quarter: 2008Q1

REPORT INFORMATION
  Report Type: 
  Country: None (occurrence: None)
  Receive Date: 20080305
  Receipt Date: 20080227
  Transmission Date: 20080703
  Serious: Yes (Hospitalization)
  Sender: FDA-Public Use
  Company Number: 2008SP003739

PATIENT
  Age: 72 Year
  Sex: Male
  Weight: 92.3 kg

DRUGS (4)
  1. TEMOZOLOMIDE [Suspect]
     Indication: GLIOBLASTOMA MULTIFORME
     Dosage: 75 MG/M2; QD; PO;PO
     Route: 048
     Dates: start: 20071030, end: 20071128
  2. TEMOZOLOMIDE [Suspect]
     Indication: GLIOBLASTOMA MULTIFORME
     Dosage: 75 MG/M2; QD; PO;PO
     Route: 048
     Dates: start: 20080117, end: 20080131
  3. LOVENOX [Suspect]
     Indication: PULMONARY EMBOLISM
     Dosage: 100 MG; SC
     Route: 058
  4. COUMADIN [Suspect]
     Indication: PULMONARY EMBOLISM
     Dates: end: 20080213

REACTIONS (9)
  - ACTIVITIES OF DAILY LIVING IMPAIRED [None]
  - ASTHENIA [None]
  - COGNITIVE DISORDER [None]
  - DRUG TOXICITY [None]
  - DYSPNOEA [None]
  - FATIGUE [None]
  - GLIOBLASTOMA MULTIFORME [None]
  - PNEUMONIA [None]
  - SUBDURAL HAEMATOMA [None]
